FAERS Safety Report 15675461 (Version 3)
Quarter: 2019Q3

REPORT INFORMATION
  Report Type: Spontaneous
  Country: CN (occurrence: CN)
  Receive Date: 20181130
  Receipt Date: 20190829
  Transmission Date: 20191004
  Serious: Yes (Death, Hospitalization, Other)
  Sender: FDA-Public Use
  Company Number: CN-GLAXOSMITHKLINE-CN2018GSK216229

PATIENT
  Age: 60 Year
  Sex: Male
  Weight: 50 kg

DRUGS (5)
  1. HEPSERA [Suspect]
     Active Substance: ADEFOVIR DIPIVOXIL
     Indication: CHRONIC HEPATITIS B
     Dosage: UNK
     Route: 048
  2. VIREAD [Suspect]
     Active Substance: TENOFOVIR DISOPROXIL FUMARATE
     Indication: CHRONIC HEPATITIS B
     Dosage: 300 MG, QD
     Route: 048
     Dates: start: 201805, end: 201808
  3. ENTECAVIR. [Suspect]
     Active Substance: ENTECAVIR
     Indication: CHRONIC HEPATITIS B
     Dosage: UNK
     Route: 048
  4. HEPTODIN [Suspect]
     Active Substance: LAMIVUDINE
     Indication: CHRONIC HEPATITIS B
     Dosage: 100 MG, QD
     Route: 048
  5. CELECOXIB. [Concomitant]
     Active Substance: CELECOXIB
     Indication: PAIN
     Dosage: UNK

REACTIONS (27)
  - Vomiting [Unknown]
  - Diabetes mellitus [Not Recovered/Not Resolved]
  - Product use issue [Unknown]
  - Jaundice [Unknown]
  - Bone pain [Unknown]
  - Renal cyst [Unknown]
  - Hepatitis B virus test positive [Unknown]
  - Splenectomy [Unknown]
  - Hepatic cirrhosis [Unknown]
  - Abdominal discomfort [Unknown]
  - Decreased appetite [Unknown]
  - Gait disturbance [Unknown]
  - Hypertension [Not Recovered/Not Resolved]
  - Pulmonary fibrosis [Unknown]
  - Diabetic neuropathy [Unknown]
  - Hepatic function abnormal [Unknown]
  - Nausea [Unknown]
  - Varices oesophageal [Unknown]
  - Fanconi syndrome acquired [Not Recovered/Not Resolved]
  - Cholecystitis [Unknown]
  - Hepatic failure [Fatal]
  - Renal tubular acidosis [Not Recovered/Not Resolved]
  - Hypokalaemia [Unknown]
  - Cerebral haemorrhage [Unknown]
  - Fatigue [Unknown]
  - Hepatic enzyme increased [Unknown]
  - Hepatic calcification [Unknown]

NARRATIVE: CASE EVENT DATE: 201808
